FAERS Safety Report 22141046 (Version 1)
Quarter: 2023Q1

REPORT INFORMATION
  Report Type: Spontaneous
  Country: US (occurrence: US)
  Receive Date: 20230327
  Receipt Date: 20230327
  Transmission Date: 20230417
  Serious: No
  Sender: FDA-Public Use
  Company Number: US-CORIUM, LLC-2023COR000031

PATIENT
  Age: 31 Year
  Sex: Female

DRUGS (1)
  1. AZSTARYS [Suspect]
     Active Substance: DEXMETHYLPHENIDATE HYDROCHLORIDE\SERDEXMETHYLPHENIDATE CHLORIDE
     Indication: Product used for unknown indication
     Dosage: 39.2 MG/7.8 MG

REACTIONS (2)
  - Heart rate increased [Unknown]
  - Chest pain [Unknown]
